FAERS Safety Report 7328142-1 (Version None)
Quarter: 2011Q1

REPORT INFORMATION
  Report Type: 
  Country: None (occurrence: None)
  Receive Date: 20110303
  Receipt Date: 20110223
  Transmission Date: 20110831
  Serious: Yes (Death, Other)
  Sender: FDA-Public Use
  Company Number: PHHY2011AU14713

PATIENT

DRUGS (5)
  1. CLOZAPINE [Suspect]
     Indication: SCHIZOPHRENIA
     Dosage: 50 MG, QD
  2. SALBUTAMOL [Concomitant]
  3. RISPERDONE [Concomitant]
  4. VENLAFAXINE [Concomitant]
  5. VALPROATE SODIUM [Concomitant]

REACTIONS (5)
  - MYOCARDITIS [None]
  - CHEST PAIN [None]
  - PYREXIA [None]
  - CORONARY ARTERY STENOSIS [None]
  - ASTHMA [None]
